FAERS Safety Report 8287201-X (Version None)
Quarter: 2012Q2

REPORT INFORMATION
  Report Type: 
  Country: None (occurrence: None)
  Receive Date: 20120416
  Receipt Date: 20120402
  Transmission Date: 20120825
  Serious: Yes (Hospitalization)
  Sender: FDA-Public Use
  Company Number: DE-ROCHE-1048176

PATIENT
  Sex: Female
  Weight: 60 kg

DRUGS (7)
  1. DELIX (GERMANY) [Concomitant]
     Dates: start: 20120304
  2. BISOPROLOL [Concomitant]
     Dates: start: 20110421
  3. DELIX (GERMANY) [Concomitant]
     Dates: start: 20100331
  4. AVASTIN [Suspect]
     Indication: BREAST CANCER
     Dosage: LAST DOSE PROIR TO SAE: 01/MAR/2012
     Route: 042
     Dates: start: 20090812
  5. AMLODIPINE [Concomitant]
     Dates: start: 20100331
  6. ACYCLOVIR [Concomitant]
     Dates: start: 20120301, end: 20120308
  7. METAMIZOLE [Concomitant]
     Indication: HERPES ZOSTER
     Route: 042

REACTIONS (2)
  - HYPERTENSION [None]
  - GENERAL PHYSICAL HEALTH DETERIORATION [None]
